FAERS Safety Report 16005975 (Version 1)
Quarter: 2019Q1

REPORT INFORMATION
  Report Type: Spontaneous
  Country: US (occurrence: US)
  Receive Date: 20190130
  Receipt Date: 20190130
  Transmission Date: 20190418
  Serious: Yes (Hospitalization)
  Sender: FDA-Public Use
  Company Number: None

PATIENT
  Age: 76 Year
  Sex: Male

DRUGS (1)
  1. NINTEDANIB [Suspect]
     Active Substance: NINTEDANIB
     Indication: IDIOPATHIC PULMONARY FIBROSIS
     Route: 048
     Dates: start: 20150909, end: 20190116

REACTIONS (3)
  - Cardiac ventricular thrombosis [None]
  - Atrial fibrillation [None]
  - Cerebrovascular accident [None]

NARRATIVE: CASE EVENT DATE: 20190116
